FAERS Safety Report 5508807-4 (Version None)
Quarter: 2007Q4

REPORT INFORMATION
  Report Type: 
  Country: None (occurrence: None)
  Receive Date: 20071105
  Receipt Date: 20071105
  Transmission Date: 20080405
  Serious: Yes (Life-Threatening, Hospitalization, Other)
  Sender: FDA-Public Use
  Company Number: None

PATIENT
  Age: 81 Year

DRUGS (9)
  1. TICE BCG [Suspect]
     Indication: NEOPLASM MALIGNANT
     Route: 043
     Dates: start: 20070522
  2. ASPIRIN [Concomitant]
  3. COREG [Concomitant]
  4. ZETIA [Concomitant]
  5. COZAAR [Concomitant]
  6. TRIAMCINOLONE ACETONIDE [Concomitant]
  7. VITAMINS A, C, AND E [Concomitant]
  8. LUTEIN [Concomitant]
  9. ZEAXANTHIN MINERALS [Concomitant]

REACTIONS (17)
  - ABDOMINAL PAIN [None]
  - BLOOD PRESSURE DECREASED [None]
  - BONE PAIN [None]
  - BOVINE TUBERCULOSIS [None]
  - CONFUSIONAL STATE [None]
  - DEPRESSION [None]
  - DISSEMINATED INTRAVASCULAR COAGULATION [None]
  - DIZZINESS [None]
  - HAEMATURIA [None]
  - LOBAR PNEUMONIA [None]
  - MALAISE [None]
  - NAUSEA [None]
  - PULMONARY EMBOLISM [None]
  - SEPSIS [None]
  - SYSTEMIC INFLAMMATORY RESPONSE SYNDROME [None]
  - TREMOR [None]
  - VOMITING [None]
